FAERS Safety Report 23415888 (Version 1)
Quarter: 2024Q1

REPORT INFORMATION
  Report Type: Spontaneous
  Country: CA (occurrence: None)
  Receive Date: 20240117
  Receipt Date: 20240117
  Transmission Date: 20240409
  Serious: Yes (Other)
  Sender: FDA-Public Use
  Company Number: None

PATIENT
  Age: 53 Year
  Sex: Female
  Weight: 70 kg

DRUGS (8)
  1. BETAMETHASONE [Suspect]
     Active Substance: BETAMETHASONE\BETAMETHASONE DIPROPIONATE
     Indication: Drug hypersensitivity
     Dosage: OTHER QUANTITY : 100 GRAMS;?FREQUENCY : AS NEEDED;?
     Route: 061
     Dates: start: 20231219, end: 20240117
  2. OMNARIS [Concomitant]
     Active Substance: CICLESONIDE
  3. NALTREXONE [Concomitant]
     Active Substance: NALTREXONE
  4. TESTOSTERONE [Concomitant]
     Active Substance: TESTOSTERONE
  5. NDT porcine [Concomitant]
  6. CANNABIDIOL [Concomitant]
     Active Substance: CANNABIDIOL
  7. Reactine 20-80 mg [Concomitant]
  8. TYLENOL EXTRA STRENGTH [Concomitant]
     Active Substance: ACETAMINOPHEN

REACTIONS (1)
  - Drug hypersensitivity [None]

NARRATIVE: CASE EVENT DATE: 20240117
